FAERS Safety Report 23313307 (Version 2)
Quarter: 2024Q4

REPORT INFORMATION
  Report Type: Report from Study
  Country: US (occurrence: US)
  Receive Date: 20231219
  Receipt Date: 20241216
  Transmission Date: 20250115
  Serious: Yes (Hospitalization, Other)
  Sender: JOHNSON AND JOHNSON
  Company Number: US-JNJFOC-20231226592

PATIENT

DRUGS (1)
  1. TECVAYLI [Suspect]
     Active Substance: TECLISTAMAB-CQYV
     Indication: Primary amyloidosis
     Route: 065

REACTIONS (9)
  - Cytokine release syndrome [Recovered/Resolved]
  - Scleritis [Recovered/Resolved]
  - Acute kidney injury [Unknown]
  - Neutropenia [Unknown]
  - Agranulocytosis [Recovering/Resolving]
  - Hypertensive urgency [Unknown]
  - Colitis [Unknown]
  - Septic shock [Unknown]
  - Off label use [Unknown]
